FAERS Safety Report 17906191 (Version 1)
Quarter: 2020Q2

REPORT INFORMATION
  Report Type: Spontaneous
  Country: US (occurrence: US)
  Receive Date: 20200616
  Receipt Date: 20200616
  Transmission Date: 20200714
  Serious: Yes (Hospitalization)
  Sender: FDA-Public Use
  Company Number: US-ROCHE-2492531

PATIENT
  Age: 76 Year
  Sex: Female
  Weight: 61.74 kg

DRUGS (21)
  1. ACTEMRA [Suspect]
     Active Substance: TOCILIZUMAB
     Route: 058
  2. RESTASIS [Concomitant]
     Active Substance: CYCLOSPORINE
  3. SPIRONOLACTON [Concomitant]
     Active Substance: SPIRONOLACTONE
  4. ALBUTEROL [SALBUTAMOL] [Concomitant]
     Active Substance: ALBUTEROL
  5. LEVOTHYROXINE. [Concomitant]
     Active Substance: LEVOTHYROXINE
  6. PREDNISONE. [Concomitant]
     Active Substance: PREDNISONE
  7. METHOTREXATE. [Concomitant]
     Active Substance: METHOTREXATE
  8. METOPROLOL SUCCINATE. [Concomitant]
     Active Substance: METOPROLOL SUCCINATE
  9. CARBIDOPA/LEVODOPA [Concomitant]
     Active Substance: CARBIDOPA\LEVODOPA
     Dosage: EXTENDED RELEASE
     Route: 065
  10. FUROSEMIDE. [Concomitant]
     Active Substance: FUROSEMIDE
  11. LUMIGAN [Concomitant]
     Active Substance: BIMATOPROST
  12. NEUPRO [Concomitant]
     Active Substance: ROTIGOTINE
  13. LIDOCAINE. [Concomitant]
     Active Substance: LIDOCAINE
  14. LYRICA [Concomitant]
     Active Substance: PREGABALIN
  15. MYRBETRIQ [Concomitant]
     Active Substance: MIRABEGRON
  16. DICLOFENAC [Concomitant]
     Active Substance: DICLOFENAC
  17. PREGABALIN. [Concomitant]
     Active Substance: PREGABALIN
  18. RASAGILINE. [Concomitant]
     Active Substance: RASAGILINE
  19. ACTEMRA [Suspect]
     Active Substance: TOCILIZUMAB
     Indication: RHEUMATOID ARTHRITIS
     Dosage: 162MG/0.9ML SYR
     Route: 058
     Dates: start: 20150326
  20. OMEPRAZOLE. [Concomitant]
     Active Substance: OMEPRAZOLE
  21. PROLIA [Concomitant]
     Active Substance: DENOSUMAB

REACTIONS (2)
  - Infection [Unknown]
  - Bronchitis [Recovered/Resolved]

NARRATIVE: CASE EVENT DATE: 20191118
